FAERS Safety Report 5603624-9 (Version None)
Quarter: 2008Q1

REPORT INFORMATION
  Report Type: 
  Country: None (occurrence: None)
  Receive Date: 20080122
  Receipt Date: 20080108
  Transmission Date: 20080703
  Serious: Yes (Hospitalization, Other)
  Sender: FDA-Public Use
  Company Number: 2005BI013804

PATIENT
  Age: 53 Year
  Sex: Male

DRUGS (1)
  1. AVONEX [Suspect]
     Indication: MULTIPLE SCLEROSIS
     Dosage: 30 UG;QW;IM
     Route: 030
     Dates: start: 20051001

REACTIONS (5)
  - CHEST DISCOMFORT [None]
  - CONDITION AGGRAVATED [None]
  - DEHYDRATION [None]
  - MULTIPLE SCLEROSIS [None]
  - NON-HODGKIN'S LYMPHOMA [None]
